FAERS Safety Report 19995293 (Version 4)
Quarter: 2022Q1

REPORT INFORMATION
  Report Type: Spontaneous
  Country: US (occurrence: US)
  Receive Date: 20211026
  Receipt Date: 20220208
  Transmission Date: 20220423
  Serious: No
  Sender: FDA-Public Use
  Company Number: US-BEH-2021136977

PATIENT
  Age: 56 Year
  Sex: Female

DRUGS (6)
  1. HIZENTRA [Suspect]
     Active Substance: HUMAN IMMUNOGLOBULIN G
     Indication: Immunodeficiency common variable
     Dosage: 10 GRAM, QOW
     Route: 058
     Dates: start: 202108
  2. HIZENTRA [Suspect]
     Active Substance: HUMAN IMMUNOGLOBULIN G
     Indication: Primary immunodeficiency syndrome
     Dosage: 16 GRAM, BIW
     Route: 058
     Dates: start: 20210226
  3. HIZENTRA [Suspect]
     Active Substance: HUMAN IMMUNOGLOBULIN G
     Dosage: 4 GRAM, QOW
     Route: 058
     Dates: start: 202108
  4. HIZENTRA [Suspect]
     Active Substance: HUMAN IMMUNOGLOBULIN G
     Dosage: 16 GRAM, BIW
     Route: 065
     Dates: start: 202111
  5. HIZENTRA [Suspect]
     Active Substance: HUMAN IMMUNOGLOBULIN G
     Dosage: 16 GRAM, BIW
     Route: 058
  6. HIZENTRA [Suspect]
     Active Substance: HUMAN IMMUNOGLOBULIN G
     Dosage: 16 GRAM, QOW
     Route: 058
     Dates: start: 202112

REACTIONS (18)
  - Blood immunoglobulin G decreased [Unknown]
  - Headache [Unknown]
  - Migraine [Recovered/Resolved]
  - Pain [Recovered/Resolved]
  - Dry eye [Unknown]
  - Dry mouth [Unknown]
  - Dizziness [Unknown]
  - Feeling abnormal [Unknown]
  - Memory impairment [Unknown]
  - Asthenia [Unknown]
  - Diarrhoea [Unknown]
  - Ill-defined disorder [Unknown]
  - Food poisoning [Recovered/Resolved]
  - Infusion site extravasation [Recovered/Resolved]
  - Infusion site extravasation [Recovered/Resolved]
  - Infusion site erythema [Recovered/Resolved]
  - Infusion site bruising [Recovered/Resolved]
  - Infusion site extravasation [Unknown]

NARRATIVE: CASE EVENT DATE: 20210301
